FAERS Safety Report 5006729-9 (Version None)
Quarter: 2006Q2

REPORT INFORMATION
  Report Type: 
  Country: None (occurrence: None)
  Receive Date: 20060519
  Receipt Date: 20060509
  Transmission Date: 20061013
  Serious: Yes (Other)
  Sender: FDA-Public Use
  Company Number: PHBS2006BR07110

PATIENT
  Sex: Male

DRUGS (1)
  1. HYDERGINE [Suspect]
     Indication: VERTIGO
     Route: 065

REACTIONS (3)
  - DIZZINESS [None]
  - PARKINSON'S DISEASE [None]
  - TREMOR [None]
